FAERS Safety Report 6897676-6 (Version None)
Quarter: 2010Q3

REPORT INFORMATION
  Report Type: 
  Country: None (occurrence: None)
  Receive Date: 20100802
  Receipt Date: 20070625
  Transmission Date: 20110219
  Serious: No
  Sender: FDA-Public Use
  Company Number: US-PFIZER INC-2007052095

PATIENT

DRUGS (4)
  1. LYRICA [Suspect]
  2. KLONOPIN [Concomitant]
  3. GEODON [Concomitant]
  4. CYMBALTA [Concomitant]

REACTIONS (1)
  - MOOD ALTERED [None]
